FAERS Safety Report 22353848 (Version 1)
Quarter: 2023Q2

REPORT INFORMATION
  Report Type: Other
  Country: ES (occurrence: ES)
  Receive Date: 20230523
  Receipt Date: 20230523
  Transmission Date: 20230721
  Serious: Yes (Other)
  Sender: FDA-Public Use
  Company Number: ES-GENCOM-0002

PATIENT
  Age: 35 Year
  Sex: Male

DRUGS (1)
  1. MYCOPHENOLATE MOFETIL [Suspect]
     Active Substance: MYCOPHENOLATE MOFETIL
     Indication: Kidney transplant rejection
     Dosage: CHRONIC TREATMENT AFTER RENAL TRASPLANTATION
     Route: 065

REACTIONS (3)
  - Microvillous inclusion disease [Recovered/Resolved]
  - Diarrhoea [Recovered/Resolved]
  - Malabsorption [Recovered/Resolved]
